FAERS Safety Report 6039010-X (Version None)
Quarter: 2009Q1

REPORT INFORMATION
  Report Type: 
  Country: None (occurrence: None)
  Receive Date: 20090115
  Receipt Date: 20020812
  Transmission Date: 20090719
  Serious: Yes (Hospitalization)
  Sender: FDA-Public Use
  Company Number: IL-BRISTOL-MYERS SQUIBB COMPANY-14467401

PATIENT
  Age: 38 Year
  Sex: Male

DRUGS (1)
  1. ABILIFY [Suspect]
     Indication: SCHIZOPHRENIA
     Dosage: 10JUN-27JUN99:20MG DUR-18 DAYS,28JUN-05JUL99:15MG DUR-8 DAYS,06JUL-20JUL99:10MG,DUR-15 DAYS.TABLET
     Route: 048
     Dates: start: 19990608, end: 19990720

REACTIONS (1)
  - SCHIZOPHRENIA [None]
